FAERS Safety Report 17346806 (Version 2)
Quarter: 2025Q2

REPORT INFORMATION
  Report Type: Spontaneous
  Country: DE (occurrence: DE)
  Receive Date: 20200130
  Receipt Date: 20250619
  Transmission Date: 20250717
  Serious: Yes (Death, Hospitalization, Other)
  Sender: ACCORD
  Company Number: DE-ACCORD-171272

PATIENT
  Age: 68 Year
  Sex: Female

DRUGS (9)
  1. METHOTREXATE [Suspect]
     Active Substance: METHOTREXATE
     Indication: Rheumatoid arthritis
     Dosage: 15 MG METHOTREXATE ORALLY ONCE A WEEK PRESCRIBED
     Route: 048
  2. TAZOBACTAM [Concomitant]
     Active Substance: TAZOBACTAM
  3. PREDNISOLONE [Concomitant]
     Active Substance: PREDNISOLONE
     Indication: Rheumatoid arthritis
     Dosage: 20 MG DAILY
  4. FOLIC ACID [Concomitant]
     Active Substance: FOLIC ACID
  5. FILGRASTIM [Concomitant]
     Active Substance: FILGRASTIM
  6. RAMIPRIL [Concomitant]
     Active Substance: RAMIPRIL
     Indication: Hypertension
  7. AMLODIPINE [Concomitant]
     Active Substance: AMLODIPINE BESYLATE
     Indication: Hypertension
  8. METFORMIN [Concomitant]
     Active Substance: METFORMIN HYDROCHLORIDE
     Indication: Diabetes mellitus
     Dosage: 1000 MG, 2X/DAY
  9. LANTUS [Concomitant]
     Active Substance: INSULIN GLARGINE
     Indication: Diabetes mellitus
     Dosage: 20 IU, 1X/DAY (AT NIGHT)

REACTIONS (3)
  - Pancytopenia [Fatal]
  - Overdose [Fatal]
  - Staphylococcal infection [Fatal]
